FAERS Safety Report 6882026-1 (Version None)
Quarter: 2010Q3

REPORT INFORMATION
  Report Type: 
  Country: None (occurrence: None)
  Receive Date: 20100729
  Receipt Date: 20100720
  Transmission Date: 20110219
  Serious: Yes (Hospitalization)
  Sender: FDA-Public Use
  Company Number: US-CELGENEUS-163-20785-10071696

PATIENT
  Sex: Male

DRUGS (2)
  1. THALOMID [Suspect]
     Indication: MULTIPLE MYELOMA
     Route: 048
     Dates: start: 20100301, end: 20100601
  2. THALOMID [Suspect]
     Route: 048
     Dates: start: 20100201, end: 20100301

REACTIONS (2)
  - MULTIPLE MYELOMA [None]
  - UNEVALUABLE EVENT [None]
